FAERS Safety Report 10041754 (Version 1)
Quarter: 2014Q1

REPORT INFORMATION
  Report Type: Report from Study
  Country: US (occurrence: US)
  Receive Date: 20140327
  Receipt Date: 20140327
  Transmission Date: 20141002
  Serious: Yes (Other)
  Sender: FDA-Public Use
  Company Number: US-JNJFOC-20140315149

PATIENT
  Age: 86 Year
  Sex: Male
  Weight: 93.9 kg

DRUGS (6)
  1. SIMPONI ARIA [Suspect]
     Indication: RHEUMATOID ARTHRITIS
     Route: 042
     Dates: start: 20140115
  2. SULFASALAZINE [Suspect]
     Indication: RHEUMATOID ARTHRITIS
     Route: 065
     Dates: start: 20140115
  3. NAPROXEN [Concomitant]
     Indication: INFLAMMATION
     Route: 048
     Dates: start: 2005
  4. HYDROXYCHLOROQUINE [Concomitant]
     Indication: INFLAMMATION
     Route: 048
  5. TRAMADOL - GENERIC [Concomitant]
     Indication: INFLAMMATORY PAIN
     Route: 048
     Dates: start: 2013
  6. HYDROCODONE [Concomitant]
     Indication: INFLAMMATORY PAIN
     Route: 048
     Dates: start: 2013

REACTIONS (4)
  - Carpal tunnel syndrome [Unknown]
  - Abscess [Unknown]
  - Rash [Not Recovered/Not Resolved]
  - Drug effect incomplete [Unknown]
